FAERS Safety Report 12406621 (Version 2)
Quarter: 2016Q2

REPORT INFORMATION
  Report Type: Spontaneous
  Country: TW (occurrence: TW)
  Receive Date: 20160526
  Receipt Date: 20160602
  Transmission Date: 20160815
  Serious: Yes (Death, Hospitalization)
  Sender: FDA-Public Use
  Company Number: TW-ASTRAZENECA-2016SE54962

PATIENT
  Age: 58 Year
  Sex: Male

DRUGS (5)
  1. SPIROROLACTONE [Concomitant]
     Dosage: 25.0MG UNKNOWN
  2. BRILINTA [Suspect]
     Active Substance: TICAGRELOR
     Indication: ACUTE MYOCARDIAL INFARCTION
     Route: 048
     Dates: start: 20160515, end: 20160517
  3. LIPITOR [Concomitant]
     Active Substance: ATORVASTATIN CALCIUM
  4. ENOXAPARINE [Suspect]
     Active Substance: ENOXAPARIN
     Indication: ACUTE MYOCARDIAL INFARCTION
     Route: 048
  5. ASPIRIN. [Suspect]
     Active Substance: ASPIRIN
     Indication: ACUTE MYOCARDIAL INFARCTION
     Route: 048

REACTIONS (1)
  - Cerebral haemorrhage [Fatal]
